FAERS Safety Report 4943971-7 (Version None)
Quarter: 2006Q1

REPORT INFORMATION
  Report Type: 
  Country: None (occurrence: None)
  Receive Date: 20060313
  Receipt Date: 20060313
  Transmission Date: 20060701
  Serious: Yes (Disabling)
  Sender: FDA-Public Use
  Company Number: None

PATIENT
  Age: 4 Year
  Sex: Male
  Weight: 21.7727 kg

DRUGS (2)
  1. ZYRTEC [Suspect]
     Indication: HYPERSENSITIVITY
  2. ZANTAC [Suspect]
     Indication: DYSPEPSIA
     Dates: start: 20060225, end: 20060303

REACTIONS (7)
  - DIARRHOEA [None]
  - DRUG DISPENSING ERROR [None]
  - HALLUCINATION [None]
  - MEDICATION ERROR [None]
  - STOMACH DISCOMFORT [None]
  - VOMITING [None]
  - WRONG DRUG ADMINISTERED [None]
